FAERS Safety Report 5924530-6 (Version None)
Quarter: 2008Q4

REPORT INFORMATION
  Report Type: 
  Country: None (occurrence: None)
  Receive Date: 20081020
  Receipt Date: 20081009
  Transmission Date: 20090506
  Serious: Yes (Hospitalization, Other)
  Sender: FDA-Public Use
  Company Number: US-AMGEN-QUU309232

PATIENT
  Sex: Male
  Weight: 79 kg

DRUGS (13)
  1. ENBREL [Suspect]
     Indication: RHEUMATOID ARTHRITIS
     Route: 058
     Dates: start: 20031105, end: 20080818
  2. METHOTREXATE [Concomitant]
     Route: 048
  3. FOLIC ACID [Concomitant]
  4. DARVOCET-N 100 [Concomitant]
  5. PLAQUENIL [Concomitant]
  6. DIOVAN [Concomitant]
  7. HUMALOG [Concomitant]
  8. NUTRITIONAL SUPPLEMENT [Concomitant]
     Route: 048
  9. MULTI-VITAMINS [Concomitant]
  10. UNSPECIFIED ANTIBIOTIC [Concomitant]
     Dates: start: 20080801
  11. FUROSEMIDE [Concomitant]
  12. PROCHLORPERAZINE [Concomitant]
  13. LEVAQUIN [Concomitant]

REACTIONS (18)
  - ARTHRALGIA [None]
  - ARTHROPATHY [None]
  - ASTHENIA [None]
  - B-CELL LYMPHOMA [None]
  - BACK PAIN [None]
  - BILE DUCT OBSTRUCTION [None]
  - BLASTOMYCOSIS [None]
  - DIZZINESS [None]
  - ELBOW OPERATION [None]
  - JOINT RANGE OF MOTION DECREASED [None]
  - NAUSEA [None]
  - OEDEMA [None]
  - PANCREATITIS [None]
  - PLEURAL EFFUSION [None]
  - RETINOPATHY [None]
  - SUPRAVENTRICULAR TACHYCARDIA [None]
  - SYNOVITIS [None]
  - TOE AMPUTATION [None]
